FAERS Safety Report 10911075 (Version 2)
Quarter: 2019Q3

REPORT INFORMATION
  Report Type: Report from Study
  Country: DE (occurrence: DE)
  Receive Date: 20150312
  Receipt Date: 20190702
  Transmission Date: 20191004
  Serious: Yes (Hospitalization, Disabling, Other)
  Sender: FDA-Public Use
  Company Number: DE-GILEAD-2015-0139844

PATIENT
  Age: 58 Year
  Sex: Male
  Weight: 62 kg

DRUGS (7)
  1. DIAZEPAM. [Concomitant]
     Active Substance: DIAZEPAM
     Dosage: 10 MG, UNK
     Route: 065
  2. LAMIVUDINE. [Concomitant]
     Active Substance: LAMIVUDINE
  3. NEMEXIN [Concomitant]
  4. SOFOSBUVIR [Suspect]
     Active Substance: SOFOSBUVIR
     Indication: CHRONIC HEPATITIS C
     Dosage: 400 MG, QD
     Route: 048
     Dates: start: 20141105, end: 20150127
  5. DACLATASVIR. [Suspect]
     Active Substance: DACLATASVIR
     Indication: CHRONIC HEPATITIS C
     Dosage: 60 MG, QD
     Route: 048
     Dates: start: 20141105, end: 20150127
  6. ABACAVIR. [Concomitant]
     Active Substance: ABACAVIR
  7. RALTEGRAVIR. [Concomitant]
     Active Substance: RALTEGRAVIR

REACTIONS (2)
  - Malignant urinary tract neoplasm [Recovered/Resolved with Sequelae]
  - Drug dependence [Recovering/Resolving]

NARRATIVE: CASE EVENT DATE: 20141128
